FAERS Safety Report 11223401 (Version 1)
Quarter: 2015Q2

REPORT INFORMATION
  Report Type: Spontaneous
  Country: US (occurrence: US)
  Receive Date: 20150627
  Receipt Date: 20150627
  Transmission Date: 20150821
  Serious: Yes (Hospitalization, Congenital Anomaly, Other)
  Sender: FDA-Public Use
  Company Number: US-APOTEX-2015AP007997

PATIENT
  Sex: Male
  Weight: 3.3 kg

DRUGS (1)
  1. PAXIL [Suspect]
     Active Substance: PAROXETINE HYDROCHLORIDE
     Indication: PRODUCT USED FOR UNKNOWN INDICATION
     Dosage: UNK, UNKNOWN
     Route: 064

REACTIONS (5)
  - Foetal exposure during pregnancy [Recovering/Resolving]
  - Tethered cord syndrome [Recovering/Resolving]
  - Hypospadias [Recovering/Resolving]
  - Spina bifida [Unknown]
  - Lipoma [Recovering/Resolving]
